FAERS Safety Report 19761194 (Version 1)
Quarter: 2021Q3

REPORT INFORMATION
  Report Type: Spontaneous
  Country: US (occurrence: US)
  Receive Date: 20210830
  Receipt Date: 20210830
  Transmission Date: 20211014
  Serious: No
  Sender: FDA-Public Use
  Company Number: US-BAYER-2021-201254

PATIENT
  Age: 89 Year
  Sex: Female

DRUGS (2)
  1. MIRALAX [Suspect]
     Active Substance: POLYETHYLENE GLYCOL 3350
     Indication: CONSTIPATION
  2. MIRALAX [Suspect]
     Active Substance: POLYETHYLENE GLYCOL 3350
     Indication: MUSCLE SPASMS
     Dosage: 17 MG, HS
     Route: 048
     Dates: start: 20210810

REACTIONS (3)
  - Off label use [Unknown]
  - Product prescribing issue [Unknown]
  - Constipation [Unknown]
